FAERS Safety Report 7120562-3 (Version None)
Quarter: 2010Q4

REPORT INFORMATION
  Report Type: 
  Country: None (occurrence: None)
  Receive Date: 20101122
  Receipt Date: 20101122
  Transmission Date: 20110411
  Serious: Yes (Other)
  Sender: FDA-Public Use
  Company Number: None

PATIENT
  Age: 54 Year
  Sex: Male
  Weight: 78.0187 kg

DRUGS (1)
  1. TOVIAZ [Suspect]
     Indication: IRRITABLE BOWEL SYNDROME
     Dosage: 8 MG. ONCE PER DAY PO
     Route: 048
     Dates: start: 20100915, end: 20101120

REACTIONS (2)
  - RASH GENERALISED [None]
  - REACTION TO DRUG EXCIPIENTS [None]
